FAERS Safety Report 13665747 (Version 2)
Quarter: 2017Q3

REPORT INFORMATION
  Report Type: Spontaneous
  Country: US (occurrence: US)
  Receive Date: 20170619
  Receipt Date: 20170919
  Transmission Date: 20171127
  Serious: Yes (Life-Threatening, Disabling, Other)
  Sender: FDA-Public Use
  Company Number: US-BAYER-2017-115096

PATIENT
  Sex: Female

DRUGS (2)
  1. GADOLINIUM IN UNSPECIFIED DRUG [Suspect]
     Active Substance: GADOLINIUM
     Indication: RHEUMATOID ARTHRITIS
  2. GADOLINIUM IN UNSPECIFIED DRUG [Suspect]
     Active Substance: GADOLINIUM
     Indication: NUCLEAR MAGNETIC RESONANCE IMAGING
     Dosage: THREE MRIS IN A ROW WITH GADOLINIUM INJECTIONS IN ONE WEEK
     Dates: start: 2013, end: 2013

REACTIONS (17)
  - Illness anxiety disorder [None]
  - Burning sensation [Recovering/Resolving]
  - Dysphagia [Recovering/Resolving]
  - Musculoskeletal disorder [Recovering/Resolving]
  - Muscular weakness [None]
  - Body temperature decreased [None]
  - Tremor [None]
  - Nervous system disorder [None]
  - Rash generalised [None]
  - Rash papular [None]
  - Gadolinium deposition disease [Recovering/Resolving]
  - Renal injury [None]
  - Osteoporosis [None]
  - Weight decreased [None]
  - Cerebral disorder [Recovering/Resolving]
  - Mobility decreased [None]
  - Alopecia [None]
